FAERS Safety Report 10706495 (Version 1)
Quarter: 2015Q1

REPORT INFORMATION
  Report Type: Spontaneous
  Country: US (occurrence: US)
  Receive Date: 20150113
  Receipt Date: 20150113
  Transmission Date: 20150721
  Serious: Yes (Other)
  Sender: FDA-Public Use
  Company Number: US-JNJFOC-20141220550

PATIENT
  Sex: Male

DRUGS (4)
  1. DEXAMETHASONE. [Concomitant]
     Active Substance: DEXAMETHASONE
     Indication: PREMEDICATION
     Route: 042
  2. DOXORUBICIN [Suspect]
     Active Substance: DOXORUBICIN
     Indication: PROSTATE CANCER METASTATIC
     Route: 042
  3. DOXORUBICIN [Suspect]
     Active Substance: DOXORUBICIN
     Indication: PROSTATE CANCER METASTATIC
     Route: 042
  4. DOXORUBICIN [Suspect]
     Active Substance: DOXORUBICIN
     Indication: PROSTATE CANCER METASTATIC
     Route: 042

REACTIONS (11)
  - Lymphopenia [Unknown]
  - Febrile neutropenia [Unknown]
  - Cystitis [Unknown]
  - Prostate cancer [Unknown]
  - Neutropenia [Recovering/Resolving]
  - Anaemia [Unknown]
  - Product use issue [Unknown]
  - Nausea [Unknown]
  - Decreased appetite [Unknown]
  - Leukopenia [Unknown]
  - Thrombocytopenia [Unknown]
